FAERS Safety Report 7647946-9 (Version None)
Quarter: 2011Q3

REPORT INFORMATION
  Report Type: 
  Country: None (occurrence: None)
  Receive Date: 20110801
  Receipt Date: 20110728
  Transmission Date: 20111222
  Serious: Yes (Death)
  Sender: FDA-Public Use
  Company Number: IT-ASTRAZENECA-2011SE41644

PATIENT
  Age: 30610 Day
  Sex: Female

DRUGS (9)
  1. FUROSEMIDE [Concomitant]
     Route: 048
  2. SPIRONOLATTONE [Concomitant]
     Route: 048
  3. LISINOPRIL DIIDRATO [Concomitant]
     Route: 048
  4. WARFARIN SODIUM [Concomitant]
     Route: 048
  5. CALCIUM CARBONATE / CHOLECALCIFEROL [Concomitant]
     Route: 048
  6. ESOMEPRAZOLE MAGNESIUM TRIHYDRATE [Concomitant]
     Route: 048
  7. ACID DISODIUM SALT CLODRONATE [Concomitant]
     Route: 030
  8. ROSUVASTATIN [Suspect]
     Indication: HYPERCHOLESTEROLAEMIA
     Route: 048
     Dates: start: 20110101, end: 20110530
  9. PREDNISONE [Concomitant]
     Indication: PEMPHIGOID
     Route: 048

REACTIONS (2)
  - RHABDOMYOLYSIS [None]
  - RENAL FAILURE ACUTE [None]
